FAERS Safety Report 18756574 (Version 2)
Quarter: 2021Q2

REPORT INFORMATION
  Report Type: Spontaneous
  Country: US (occurrence: US)
  Receive Date: 20210119
  Receipt Date: 20210416
  Transmission Date: 20210717
  Serious: Yes (Hospitalization)
  Sender: FDA-Public Use
  Company Number: US-TEVA-2021-US-1869743

PATIENT
  Age: 70 Year
  Sex: Female

DRUGS (1)
  1. METHYLPHENIDATE. [Suspect]
     Active Substance: METHYLPHENIDATE
     Indication: MENTAL IMPAIRMENT
     Route: 065

REACTIONS (3)
  - Acute kidney injury [Recovering/Resolving]
  - Acute pulmonary oedema [Recovering/Resolving]
  - Antiphospholipid syndrome [Recovering/Resolving]
